FAERS Safety Report 9900086 (Version 1)
Quarter: 2014Q1

REPORT INFORMATION
  Report Type: Spontaneous
  Country: US (occurrence: US)
  Receive Date: 20140214
  Receipt Date: 20140214
  Transmission Date: 20141002
  Serious: No
  Sender: FDA-Public Use
  Company Number: US-PFIZER INC-2014038237

PATIENT
  Age: 42 Year
  Sex: Male
  Weight: 83.9 kg

DRUGS (4)
  1. XYNTHA [Suspect]
     Indication: FACTOR VIII DEFICIENCY
     Dosage: 1990 IU, ALTERNATE DAY
     Route: 042
     Dates: start: 20091209
  2. OMEPRAZOLE [Concomitant]
     Dosage: 20 MG, 2X/DAY
  3. ISENTRESS [Concomitant]
     Dosage: 400 MG, 2X/DAY
  4. TRUVADA [Concomitant]
     Dosage: 1 DF, DAILY

REACTIONS (2)
  - Paraesthesia [Unknown]
  - Pruritus [Unknown]
